FAERS Safety Report 19973812 (Version 1)
Quarter: 2021Q4

REPORT INFORMATION
  Report Type: Report from Study
  Country: US (occurrence: US)
  Receive Date: 20211020
  Receipt Date: 20211020
  Transmission Date: 20220303
  Serious: Yes (Hospitalization)
  Sender: FDA-Public Use
  Company Number: US-ROCHE-2934863

PATIENT
  Age: 76 Year
  Sex: Male
  Weight: 60.9 kg

DRUGS (3)
  1. ATEZOLIZUMAB [Suspect]
     Active Substance: ATEZOLIZUMAB
     Indication: Small cell lung cancer
     Dosage: ON 19/APR/2021, HE RECEIVED MOST RECENT DOSE OF ATEZOLIZUMAB.
     Route: 041
     Dates: start: 20210419, end: 20210419
  2. CISPLATIN [Suspect]
     Active Substance: CISPLATIN
     Indication: Small cell lung cancer
     Dosage: ON 19/APR/2021, HE RECEIVED MOST RECENT DOSE OF CISPLATIN.
     Route: 065
     Dates: start: 20210419, end: 20210419
  3. ETOPOSIDE [Suspect]
     Active Substance: ETOPOSIDE
     Indication: Small cell lung cancer
     Dosage: ON 21/APR/2021, HE RECEIVED MOST RECENT DOSE OF ETOPOSIDE.
     Route: 065
     Dates: start: 20210419, end: 20210421

REACTIONS (1)
  - Hypotension [Recovering/Resolving]

NARRATIVE: CASE EVENT DATE: 20210503
